FAERS Safety Report 24989006 (Version 2)
Quarter: 2025Q1

REPORT INFORMATION
  Report Type: Spontaneous
  Country: IN (occurrence: IN)
  Receive Date: 20250220
  Receipt Date: 20250320
  Transmission Date: 20250409
  Serious: Yes (Hospitalization)
  Sender: ROCHE
  Company Number: IN-ROCHE-10000208207

PATIENT
  Age: 66 Year
  Sex: Male

DRUGS (2)
  1. TECENTRIQ [Suspect]
     Active Substance: ATEZOLIZUMAB
     Indication: Neuroendocrine cancer of the prostate metastatic
     Route: 042
     Dates: start: 20240517
  2. AVASTIN [Suspect]
     Active Substance: BEVACIZUMAB
     Indication: Neuroendocrine cancer of the prostate metastatic
     Route: 042
     Dates: start: 20240517

REACTIONS (2)
  - Arthralgia [Unknown]
  - Vertebral lesion [Unknown]
